FAERS Safety Report 9668360 (Version 7)
Quarter: 2014Q1

REPORT INFORMATION
  Report Type: Report from Study
  Country: CA (occurrence: CA)
  Receive Date: 20131104
  Receipt Date: 20140313
  Transmission Date: 20141002
  Serious: Yes (Death, Hospitalization)
  Sender: FDA-Public Use
  Company Number: CA-TEVA-440920USA

PATIENT
  Age: 68 Year
  Sex: Male
  Weight: 75.4 kg

DRUGS (11)
  1. BENDAMUSTINE [Suspect]
     Indication: CHRONIC LYMPHOCYTIC LEUKAEMIA
     Route: 042
     Dates: start: 20130725
  2. BENDAMUSTINE [Suspect]
     Route: 042
     Dates: start: 20130920
  3. RITUXIMAB [Suspect]
     Indication: CHRONIC LYMPHOCYTIC LEUKAEMIA
     Route: 042
     Dates: start: 20130724
  4. RITUXIMAB [Suspect]
     Route: 042
     Dates: start: 20130919
  5. IBRUTINIB/PLACEBO [Suspect]
     Indication: CHRONIC LYMPHOCYTIC LEUKAEMIA
     Dosage: ONCE A DAY
     Route: 048
     Dates: start: 20130725
  6. IBRUTINIB/PLACEBO [Suspect]
     Dosage: ONCE A DAY
     Route: 048
     Dates: start: 20131015
  7. ACETAMINOPHEN [Concomitant]
     Indication: PREMEDICATION
     Route: 048
     Dates: start: 20130603
  8. ACETAMINOPHEN [Concomitant]
     Indication: PYREXIA
  9. DIPHENHYDRAMINE [Concomitant]
     Indication: PREMEDICATION
     Route: 042
     Dates: start: 20130724
  10. ONDANSETRON [Concomitant]
     Indication: PROPHYLAXIS OF NAUSEA AND VOMITING
     Route: 048
     Dates: start: 20130725
  11. DULCOLAX [Concomitant]
     Indication: CONSTIPATION
     Dates: start: 20130807

REACTIONS (1)
  - Lung infiltration [Fatal]
